FAERS Safety Report 4913028-X (Version None)
Quarter: 2006Q1

REPORT INFORMATION
  Report Type: 
  Country: None (occurrence: None)
  Receive Date: 20060215
  Receipt Date: 20060202
  Transmission Date: 20060701
  Serious: Yes (Hospitalization)
  Sender: FDA-Public Use
  Company Number: US-AMGEN-US167457

PATIENT
  Sex: Female
  Weight: 102.3 kg

DRUGS (16)
  1. NEUPOGEN [Suspect]
     Indication: PERIPHERAL BLOOD STEM CELL APHERESIS
     Route: 058
     Dates: start: 20060127, end: 20060202
  2. LIPITOR [Concomitant]
  3. SYNTHROID [Concomitant]
  4. FOLIC ACID [Concomitant]
  5. ATENOLOL [Concomitant]
  6. ALDACTONE [Concomitant]
  7. CARDURA [Concomitant]
  8. LOTENSIN [Concomitant]
  9. LASIX [Concomitant]
  10. PREMARIN [Concomitant]
  11. KLOR-CON [Concomitant]
  12. IRON [Concomitant]
  13. CALTRATE [Concomitant]
  14. MULTIVITAMIN [Concomitant]
  15. TUMS [Concomitant]
  16. LOVENOX [Concomitant]

REACTIONS (3)
  - ATRIAL FIBRILLATION [None]
  - CHEST PAIN [None]
  - DYSPNOEA [None]
